FAERS Safety Report 7909193-2 (Version None)
Quarter: 2011Q4

REPORT INFORMATION
  Report Type: 
  Country: None (occurrence: None)
  Receive Date: 20111111
  Receipt Date: 20110713
  Transmission Date: 20120403
  Serious: No
  Sender: FDA-Public Use
  Company Number: US-GLAXOSMITHKLINE-A0936683A

PATIENT
  Age: 67 Year
  Sex: Female

DRUGS (4)
  1. COREG [Suspect]
     Indication: CARDIAC DISORDER
     Dosage: 25MG TWICE PER DAY
     Route: 048
     Dates: start: 20100101
  2. PLAVIX [Concomitant]
  3. GLUCOVANCE [Concomitant]
  4. SYNTHROID [Concomitant]

REACTIONS (2)
  - HEART RATE INCREASED [None]
  - EXTRASYSTOLES [None]
